FAERS Safety Report 7285834-0 (Version None)
Quarter: 2011Q1

REPORT INFORMATION
  Report Type: 
  Country: None (occurrence: None)
  Receive Date: 20110125
  Receipt Date: 20110110
  Transmission Date: 20110831
  Serious: Yes (Death)
  Sender: FDA-Public Use
  Company Number: 025446

PATIENT
  Age: 55 Year
  Sex: Female

DRUGS (3)
  1. ETHYLENE GLYCOL [Suspect]
     Dosage: (ORAL)
     Route: 048
  2. ALPRAZOLAM [Suspect]
     Dosage: (ORAL)
     Route: 048
  3. METHADONE [Suspect]
     Dosage: (ORAL)
     Route: 048

REACTIONS (15)
  - SNORING [None]
  - UNRESPONSIVE TO STIMULI [None]
  - BLOOD PH DECREASED [None]
  - ALCOHOL POISONING [None]
  - MULTIPLE DRUG OVERDOSE [None]
  - BRAIN DEATH [None]
  - CARDIO-RESPIRATORY ARREST [None]
  - PUPILS UNEQUAL [None]
  - BLOOD GLUCOSE INCREASED [None]
  - BLOOD LACTIC ACID INCREASED [None]
  - PO2 INCREASED [None]
  - BLOOD CREATININE INCREASED [None]
  - BLOOD BICARBONATE DECREASED [None]
  - HEART RATE INCREASED [None]
  - PCO2 INCREASED [None]
